FAERS Safety Report 5649995-9 (Version None)
Quarter: 2008Q1

REPORT INFORMATION
  Report Type: 
  Country: None (occurrence: None)
  Receive Date: 20080131
  Receipt Date: 20071126
  Transmission Date: 20080703
  Serious: No
  Sender: FDA-Public Use
  Company Number: 2006PV016039

PATIENT
  Age: 41 Year
  Sex: Female
  Weight: 67.6 kg

DRUGS (2)
  1. EXENATIDE(EXENATIDE) PEN,DISPOSABLE [Suspect]
     Indication: TYPE 2 DIABETES MELLITUS
     Dosage: 5 UG, 2/D, SUBCUTANEOUS ; 10 UG, 2/D, SUBCUTANEOUS
     Route: 058
     Dates: start: 20060301, end: 20070601
  2. METFORMIN [Concomitant]

REACTIONS (10)
  - BLOOD GLUCOSE DECREASED [None]
  - DIZZINESS [None]
  - INCOHERENT [None]
  - INCORRECT ROUTE OF DRUG ADMINISTRATION [None]
  - INJECTION SITE BRUISING [None]
  - LETHARGY [None]
  - NAUSEA [None]
  - PAIN [None]
  - SOMNOLENCE [None]
  - ULCER [None]
